FAERS Safety Report 9145725 (Version 1)
Quarter: 2013Q1

REPORT INFORMATION
  Report Type: Report from Study
  Country: US (occurrence: US)
  Receive Date: 20130307
  Receipt Date: 20130307
  Transmission Date: 20140127
  Serious: Yes (Other)
  Sender: FDA-Public Use
  Company Number: US-ABBOTT-13P-163-1055191-00

PATIENT
  Age: 59 None
  Sex: Female
  Weight: 102.15 kg

DRUGS (16)
  1. HUMIRA [Suspect]
     Indication: PSORIATIC ARTHROPATHY
     Route: 058
     Dates: start: 2001
  2. LIPITOR [Concomitant]
     Indication: BLOOD CHOLESTEROL INCREASED
  3. LOVAZA [Concomitant]
     Indication: MUSCLE SPASMS
  4. SALSALATE [Concomitant]
     Indication: PSORIATIC ARTHROPATHY
  5. SYNTHROID [Concomitant]
     Indication: HYPOTHYROIDISM
  6. HYZAAR [Concomitant]
     Indication: HYPERTENSION
     Dosage: 100/25MG DAILY
  7. CENTRUM SILVER MULTIVITAMIN [Concomitant]
     Indication: VITAMIN SUPPLEMENTATION
  8. CATRATE AND MAG OXIDE [Concomitant]
     Indication: SUPPLEMENTATION THERAPY
  9. PRILOSEC [Concomitant]
     Indication: GASTROOESOPHAGEAL REFLUX DISEASE
  10. ATIVAN [Concomitant]
     Indication: MUSCLE SPASMS
  11. PLAVIX [Concomitant]
     Indication: PRODUCT USED FOR UNKNOWN INDICATION
     Dates: start: 2008
  12. TOPROL [Concomitant]
     Indication: PRODUCT USED FOR UNKNOWN INDICATION
     Dates: start: 2008
  13. ASPIRIN [Concomitant]
     Indication: PRODUCT USED FOR UNKNOWN INDICATION
     Dates: start: 2008
  14. NITRO [Concomitant]
     Indication: CHEST PAIN
     Dates: start: 2008
  15. CALTRATE [Concomitant]
     Indication: PRODUCT USED FOR UNKNOWN INDICATION
  16. MAG OXIDE [Concomitant]
     Indication: PRODUCT USED FOR UNKNOWN INDICATION

REACTIONS (4)
  - Coronary artery occlusion [Recovered/Resolved]
  - Palpitations [Recovered/Resolved]
  - Palpitations [Unknown]
  - Injection site bruising [Recovered/Resolved]
